FAERS Safety Report 13367733 (Version 2)
Quarter: 2017Q2

REPORT INFORMATION
  Report Type: Spontaneous
  Country: AT (occurrence: AT)
  Receive Date: 20170324
  Receipt Date: 20170509
  Transmission Date: 20170830
  Serious: Yes (Other)
  Sender: FDA-Public Use
  Company Number: AT-BAYER-2017-010286

PATIENT
  Age: 66 Year
  Sex: Male

DRUGS (7)
  1. DOXAPRESS [Concomitant]
     Dosage: 4MG 0-0-1/2
  2. XARELTO [Concomitant]
     Active Substance: RIVAROXABAN
     Dosage: 10MG 1-0-0
  3. PANTOPRAZOLE [Concomitant]
     Active Substance: PANTOPRAZOLE
     Dosage: 40MG 1-0-0
  4. NOMEXOR [Concomitant]
     Active Substance: NEBIVOLOL HYDROCHLORIDE
     Dosage: 5MG 1/2-0-0
  5. DIAMICRON MR [Concomitant]
     Active Substance: GLICLAZIDE
     Dosage: 30MG 1-1-0
  6. STIVARGA [Suspect]
     Active Substance: REGORAFENIB
     Indication: HEPATOCELLULAR CARCINOMA
     Dosage: UNK
     Dates: start: 201504, end: 20150810
  7. ENAC [Concomitant]
     Dosage: 20MG 1-0-1

REACTIONS (5)
  - Weight decreased [None]
  - Decreased appetite [None]
  - Disease progression [None]
  - Dysphonia [None]
  - Fatigue [None]

NARRATIVE: CASE EVENT DATE: 201508
